FAERS Safety Report 4471491-5 (Version None)
Quarter: 2004Q4

REPORT INFORMATION
  Report Type: 
  Country: None (occurrence: None)
  Receive Date: 20041006
  Receipt Date: 20040927
  Transmission Date: 20050328
  Serious: Yes (Other)
  Sender: FDA-Public Use
  Company Number: 200414642BCC

PATIENT
  Age: 73 Year
  Sex: Female
  Weight: 63.5036 kg

DRUGS (7)
  1. EXTRA STRENGTH BAYER CAPLETS (ACETYLSALICYLIC ACID) [Suspect]
     Dosage: 1000 MG, QID, ORAL
     Route: 048
     Dates: start: 20040923, end: 20040926
  2. NORVASC [Concomitant]
  3. HYDROCHLOROTHIAZIDE [Concomitant]
  4. NEXIUM [Concomitant]
  5. MULTIVITAMIN [Concomitant]
  6. VITAMIN E [Concomitant]
  7. PERFECT OILS [Concomitant]

REACTIONS (1)
  - HEARING IMPAIRED [None]
